FAERS Safety Report 7428285-8 (Version None)
Quarter: 2011Q2

REPORT INFORMATION
  Report Type: 
  Country: None (occurrence: None)
  Receive Date: 20110418
  Receipt Date: 20110418
  Transmission Date: 20111010
  Serious: Yes (Other)
  Sender: FDA-Public Use
  Company Number: None

PATIENT
  Age: 59 Year
  Sex: Male
  Weight: 78.9259 kg

DRUGS (2)
  1. ZOCOR [Concomitant]
  2. PLAVIX [Suspect]
     Indication: STENT PLACEMENT
     Dosage: 75 MG DAILY IN A.AM PO
     Route: 048
     Dates: start: 20101203, end: 20110404

REACTIONS (10)
  - IMPAIRED HEALING [None]
  - ARTHRITIS [None]
  - PERIPHERAL NERVE LESION [None]
  - HAEMORRHAGE [None]
  - DIVERTICULUM [None]
  - INCREASED TENDENCY TO BRUISE [None]
  - GASTROINTESTINAL PAIN [None]
  - COLONIC POLYP [None]
  - WEIGHT DECREASED [None]
  - ULCER [None]
